FAERS Safety Report 16714919 (Version 1)
Quarter: 2019Q3

REPORT INFORMATION
  Report Type: Spontaneous
  Country: LB (occurrence: LB)
  Receive Date: 20190819
  Receipt Date: 20190819
  Transmission Date: 20191005
  Serious: Yes (Death, Life-Threatening, Hospitalization)
  Sender: FDA-Public Use
  Company Number: LB-SCILEX PHARMACEUTICALS INC.-2019SCX00064

PATIENT
  Age: 33 Year
  Sex: Female
  Weight: 70 kg

DRUGS (2)
  1. LIDOCAINE. [Suspect]
     Active Substance: LIDOCAINE
     Indication: LIPOSUCTION
  2. LIDOCAINE. [Suspect]
     Active Substance: LIDOCAINE
     Indication: ANAESTHESIA
     Dosage: 5000 MG, 1X/DAY
     Route: 058

REACTIONS (10)
  - Septic shock [Fatal]
  - Brain injury [Fatal]
  - Pneumonia aspiration [Unknown]
  - Electrolyte imbalance [Fatal]
  - Loss of consciousness [Not Recovered/Not Resolved]
  - Toxicity to various agents [Not Recovered/Not Resolved]
  - Seizure [Unknown]
  - Nosocomial infection [Fatal]
  - Cardio-respiratory arrest [Recovered/Resolved]
  - Organ failure [Fatal]
